FAERS Safety Report 4598831-0 (Version None)
Quarter: 2005Q1

REPORT INFORMATION
  Report Type: 
  Country: None (occurrence: None)
  Receive Date: 20050304
  Receipt Date: 20050111
  Transmission Date: 20050727
  Serious: Yes (Death)
  Sender: FDA-Public Use
  Company Number: US-JNJFOC-20050103088

PATIENT
  Age: 65 Year
  Sex: Male
  Weight: 75.9 kg

DRUGS (8)
  1. INFLIXIMAB [Suspect]
     Indication: ASTHENIA
     Route: 042
  2. INFLIXIMAB [Suspect]
     Indication: ANOREXIA
     Route: 042
  3. INFLIXIMAB [Suspect]
     Route: 042
  4. PLACEBO [Suspect]
     Indication: ASTHENIA
  5. PLACEBO [Suspect]
     Indication: ANOREXIA
  6. PLACEBO [Suspect]
  7. TAXOTERE [Suspect]
  8. TAXOTERE [Suspect]
     Indication: NON-SMALL CELL LUNG CANCER

REACTIONS (2)
  - DRUG INTERACTION [None]
  - MALIGNANT NEOPLASM PROGRESSION [None]
